FAERS Safety Report 24096087 (Version 1)
Quarter: 2024Q3

REPORT INFORMATION
  Report Type: Spontaneous
  Country: US (occurrence: US)
  Receive Date: 20240716
  Receipt Date: 20240716
  Transmission Date: 20241016
  Serious: No
  Sender: SANOFI AVENTIS
  Company Number: US-SA-SAC20240712000447

PATIENT
  Age: 54 Year
  Sex: Female
  Weight: 120 kg

DRUGS (17)
  1. KEVZARA [Suspect]
     Active Substance: SARILUMAB
     Indication: Rheumatoid arthritis
     Dosage: 200 MG, QOW
     Route: 058
     Dates: start: 20240326
  2. COENZYME Q10 [Concomitant]
     Active Substance: DIETARY SUPPLEMENT\UBIDECARENONE
  3. PROBIOTIC BLEND [Concomitant]
     Dosage: UNK
  4. VITAMIN D3 [Concomitant]
     Active Substance: CHOLECALCIFEROL
  5. POTASSIUM [Concomitant]
     Active Substance: POTASSIUM
  6. IRON [Concomitant]
     Active Substance: IRON
  7. LORATADINE [Concomitant]
     Active Substance: LORATADINE
  8. METFORMIN HYDROCHLORIDE [Concomitant]
     Active Substance: METFORMIN HYDROCHLORIDE
  9. GABAPENTIN [Concomitant]
     Active Substance: GABAPENTIN
  10. METOPROLOL SUCCINATE [Concomitant]
     Active Substance: METOPROLOL SUCCINATE
  11. MYRBETRIQ [Concomitant]
     Active Substance: MIRABEGRON
     Dosage: 50 MG, QD
  12. LORAZEPAM [Concomitant]
     Active Substance: LORAZEPAM
  13. CELEBREX [Concomitant]
     Active Substance: CELECOXIB
  14. MONTELUKAST SODIUM [Concomitant]
     Active Substance: MONTELUKAST SODIUM
  15. ROSUVASTATIN CALCIUM [Concomitant]
     Active Substance: ROSUVASTATIN CALCIUM
  16. TRIMETHOPRIM [Concomitant]
     Active Substance: TRIMETHOPRIM
  17. OZEMPIC [Concomitant]
     Active Substance: SEMAGLUTIDE

REACTIONS (4)
  - Injection site urticaria [Recovered/Resolved]
  - Nasal congestion [Recovered/Resolved]
  - Limb injury [Recovering/Resolving]
  - Injection site erythema [Recovered/Resolved]

NARRATIVE: CASE EVENT DATE: 20240101
